FAERS Safety Report 10150805 (Version 1)
Quarter: 2014Q2

REPORT INFORMATION
  Report Type: Spontaneous
  Country: US (occurrence: US)
  Receive Date: 20140502
  Receipt Date: 20140502
  Transmission Date: 20141212
  Serious: No
  Sender: FDA-Public Use
  Company Number: US-ASTRAZENECA-2013SE30726

PATIENT
  Sex: Female

DRUGS (1)
  1. PRILOSEC OTC [Suspect]
     Route: 048
     Dates: start: 201301

REACTIONS (10)
  - Dyspnoea [Unknown]
  - Cough [Unknown]
  - Discomfort [Unknown]
  - Weight decreased [Unknown]
  - Productive cough [Unknown]
  - Pain [Unknown]
  - Infection [Unknown]
  - Hypersensitivity [Unknown]
  - Flatulence [Unknown]
  - Eructation [Unknown]
